FAERS Safety Report 9547939 (Version 1)
Quarter: 2013Q2

REPORT INFORMATION
  Report Type: Spontaneous
  Country: US (occurrence: None)
  Receive Date: 20130628
  Receipt Date: 20130628
  Transmission Date: 20140414
  Serious: Yes (Other)
  Sender: FDA-Public Use
  Company Number: 249647

PATIENT
  Age: 56 Year
  Sex: Female
  Weight: 53.07 kg

DRUGS (1)
  1. MEPIVACAINE HYDROCHLORIDE [Suspect]
     Indication: LOCAL ANAESTHESIA
     Dosage: SEVERAL INJECTION
     Dates: start: 20090414, end: 20090414

REACTIONS (8)
  - Eye irritation [None]
  - Injection site swelling [None]
  - Pain in extremity [None]
  - Muscular weakness [None]
  - Tinnitus [None]
  - Drug effect prolonged [None]
  - Dizziness [None]
  - Nausea [None]
